FAERS Safety Report 8471752-9 (Version None)
Quarter: 2012Q2

REPORT INFORMATION
  Report Type: 
  Country: None (occurrence: None)
  Receive Date: 20120627
  Receipt Date: 20120614
  Transmission Date: 20120825
  Serious: Yes (Death)
  Sender: FDA-Public Use
  Company Number: IN-ROCHE-1081764

PATIENT
  Age: 65 Year
  Sex: Female

DRUGS (2)
  1. ENOXAPARIN [Concomitant]
  2. METALYSE [Suspect]
     Indication: ACUTE MYOCARDIAL INFARCTION
     Route: 042

REACTIONS (1)
  - CARDIAC ARREST [None]
